FAERS Safety Report 4405848-5 (Version None)
Quarter: 2004Q3

REPORT INFORMATION
  Report Type: 
  Country: None (occurrence: None)
  Receive Date: 20040723
  Receipt Date: 20040114
  Transmission Date: 20050211
  Serious: Yes (Hospitalization)
  Sender: FDA-Public Use
  Company Number: US-GLAXOSMITHKLINE-A0493271A

PATIENT
  Age: 65 Year
  Sex: Female

DRUGS (11)
  1. AVANDIA [Suspect]
     Dosage: 8MG PER DAY
     Route: 048
     Dates: start: 20000101, end: 20030101
  2. LASIX [Concomitant]
  3. K-DUR 10 [Concomitant]
  4. NEURONTIN [Concomitant]
  5. ESTRADIOL [Concomitant]
  6. LIPITOR [Concomitant]
  7. PROVENTIL [Concomitant]
  8. SEREVENT [Concomitant]
  9. FLONASE [Concomitant]
  10. XANAX [Concomitant]
  11. PROZAC [Concomitant]

REACTIONS (2)
  - CARDIAC FAILURE CONGESTIVE [None]
  - OEDEMA [None]
